FAERS Safety Report 5355631-1 (Version None)
Quarter: 2007Q2

REPORT INFORMATION
  Report Type: 
  Country: None (occurrence: None)
  Receive Date: 20070613
  Receipt Date: 20070611
  Transmission Date: 20071010
  Serious: Yes (Other)
  Sender: FDA-Public Use
  Company Number: B0474846A

PATIENT
  Age: 2 Year
  Sex: Female

DRUGS (4)
  1. CEFUROXIME [Suspect]
     Indication: ACUTE TONSILLITIS
     Dosage: 4ML TWICE PER DAY
     Route: 048
     Dates: start: 20070529, end: 20070530
  2. IBUPROFEN [Suspect]
     Indication: ACUTE TONSILLITIS
     Dosage: 15ML PER DAY
     Route: 048
     Dates: start: 20070529, end: 20070530
  3. ACETAMINOPHEN [Concomitant]
     Indication: DRUG USE FOR UNKNOWN INDICATION
     Route: 054
     Dates: start: 20070522, end: 20070530
  4. SILVER PROTEIN [Concomitant]
     Indication: DRUG USE FOR UNKNOWN INDICATION
     Route: 045
     Dates: start: 20070529, end: 20070530

REACTIONS (1)
  - ANGIOEDEMA [None]
